FAERS Safety Report 8189833-6 (Version None)
Quarter: 2012Q1

REPORT INFORMATION
  Report Type: 
  Country: None (occurrence: None)
  Receive Date: 20120307
  Receipt Date: 20110922
  Transmission Date: 20120608
  Serious: No
  Sender: FDA-Public Use
  Company Number: US-GLAXOSMITHKLINE-A0945628A

PATIENT
  Age: 73 Year
  Sex: Female

DRUGS (5)
  1. LISINOPRIL [Concomitant]
  2. RANITIDINE [Concomitant]
  3. ACETAMINOPHEN [Concomitant]
  4. FUROSEMIDE [Concomitant]
  5. REQUIP [Suspect]
     Indication: PARKINSON'S DISEASE
     Dosage: 1MG TWICE PER DAY
     Route: 048
     Dates: start: 20090901

REACTIONS (11)
  - DIZZINESS [None]
  - THERAPEUTIC RESPONSE UNEXPECTED [None]
  - OROPHARYNGEAL PAIN [None]
  - FEELING ABNORMAL [None]
  - NERVOUSNESS [None]
  - LABYRINTHITIS [None]
  - DRY MOUTH [None]
  - BALANCE DISORDER [None]
  - FEELING JITTERY [None]
  - HYPERHIDROSIS [None]
  - FRUSTRATION [None]
